FAERS Safety Report 8608120 (Version 3)
Quarter: 2014Q2

REPORT INFORMATION
  Report Type: Spontaneous
  Country: US (occurrence: US)
  Receive Date: 20120611
  Receipt Date: 20140414
  Transmission Date: 20141212
  Serious: Yes (Hospitalization)
  Sender: FDA-Public Use
  Company Number: US-ASTRAZENECA-2012SE35583

PATIENT
  Age: 548 Month
  Sex: Female
  Weight: 68 kg

DRUGS (23)
  1. NEXIUM [Suspect]
     Indication: GASTROOESOPHAGEAL REFLUX DISEASE
     Route: 048
  2. NEXIUM [Suspect]
     Indication: GASTROOESOPHAGEAL REFLUX DISEASE
     Route: 048
  3. NEXIUM [Suspect]
     Indication: GASTROOESOPHAGEAL REFLUX DISEASE
     Route: 048
     Dates: start: 20010803
  4. NEXIUM [Suspect]
     Indication: GASTROOESOPHAGEAL REFLUX DISEASE
     Route: 048
     Dates: start: 20070705
  5. NEXIUM [Suspect]
     Indication: GASTROOESOPHAGEAL REFLUX DISEASE
     Route: 048
     Dates: start: 2012
  6. RENODINE [Concomitant]
  7. ROLAIDS [Concomitant]
     Dosage: OTC
  8. TUMS [Concomitant]
     Dosage: OTC
  9. TAMIFLU [Concomitant]
     Dates: start: 20050323
  10. PROMETHAZINE [Concomitant]
     Dates: start: 20050323
  11. CEPHALEXIN [Concomitant]
     Dates: start: 20070104
  12. DEXAMETHASONE [Concomitant]
     Dates: start: 20070108
  13. CLINDAMYCIN HCL [Concomitant]
     Dates: start: 20070108
  14. METHYLPREDNISOLONE [Concomitant]
     Dates: start: 20070123
  15. HYDROCHLOROTHIAZIDE [Concomitant]
     Dates: start: 20050323
  16. HYDROCODONE/APAP [Concomitant]
     Dosage: 5/500 MG
     Dates: start: 20070327
  17. OMEPRAZOLE [Concomitant]
     Dates: start: 20100915
  18. RANITIDINE [Concomitant]
     Dates: start: 20100915
  19. PREDNISONE [Concomitant]
     Dates: start: 20120521
  20. GABAPENTIN [Concomitant]
     Dates: start: 20130319
  21. CENESTIN [Concomitant]
     Dates: start: 20020104
  22. FUROSEMIDE [Concomitant]
     Dates: start: 20110323
  23. KLOR-CON [Concomitant]
     Dates: start: 20110323

REACTIONS (7)
  - Gastric disorder [Unknown]
  - Thoracic vertebral fracture [Unknown]
  - Osteoporosis [Unknown]
  - Multiple fractures [Unknown]
  - Fall [Unknown]
  - Vitamin D deficiency [Unknown]
  - Osteopenia [Unknown]
